FAERS Safety Report 17834179 (Version 1)
Quarter: 2020Q2

REPORT INFORMATION
  Report Type: Spontaneous
  Country: US (occurrence: US)
  Receive Date: 20200528
  Receipt Date: 20200528
  Transmission Date: 20200714
  Serious: No
  Sender: FDA-Public Use
  Company Number: US-CIPLA LTD.-2020US03225

PATIENT

DRUGS (17)
  1. LORATADINE. [Concomitant]
     Active Substance: LORATADINE
     Indication: HYPERSENSITIVITY
     Dosage: 10 MILLIGRAM, QD (AM) (ONE A DAY)
     Route: 065
  2. DICLOFENAC [Suspect]
     Active Substance: DICLOFENAC
     Indication: SPONDYLITIS
  3. DONEPEZIL. [Concomitant]
     Active Substance: DONEPEZIL
     Indication: MEMORY IMPAIRMENT
     Dosage: 10 MILLIGRAM, QD (PM) (ONE A DAY)
     Route: 065
  4. ACETAMINOPHEN. [Concomitant]
     Active Substance: ACETAMINOPHEN
     Indication: PRODUCT USED FOR UNKNOWN INDICATION
     Dosage: 500 MILLIGRAM, QID (500 MG /2 IN MORNING 2 IN EVENING)
     Route: 065
  5. ASPIRIN [ACETYLSALICYLIC ACID] [Concomitant]
     Active Substance: ASPIRIN
     Indication: CARDIAC DISORDER
     Dosage: 81 MILLIGRAM, QD (ONCE EVERY MORNING)
     Route: 065
  6. DICLOFENAC [Suspect]
     Active Substance: DICLOFENAC
     Indication: ARTHRITIS
     Dosage: UNK, QD (ONCE AT NIGHT)
     Route: 061
  7. DICLOFENAC [Suspect]
     Active Substance: DICLOFENAC
     Indication: SPINAL PAIN
  8. MELATONIN [Concomitant]
     Active Substance: MELATONIN
     Indication: SLEEP DISORDER
     Dosage: 5 MILLIGRAM, QD (ONE AT NIGHT)
     Route: 065
  9. GLUCOSAMINE [Concomitant]
     Active Substance: GLUCOSAMINE
     Indication: MUSCLE DISORDER
     Dosage: 2 MILLIGRAM, BID (ONE IN THE MORNING AND ONE IN EVENING)
     Route: 065
  10. TRAVATAN [Concomitant]
     Active Substance: TRAVOPROST
     Indication: GLAUCOMA
     Dosage: 1 GTT, QD (ONE DROP IN EACH EYE EVERY NIGHT)
     Route: 065
  11. ESOMEPRAZOLE. [Concomitant]
     Active Substance: ESOMEPRAZOLE MAGNESIUM
     Indication: HYPERCHLORHYDRIA
     Dosage: 20 MILLIGRAM, QD (ONCE EVERY MORNING)
     Route: 065
  12. ROSUVASTATIN. [Concomitant]
     Active Substance: ROSUVASTATIN
     Indication: PRODUCT USED FOR UNKNOWN INDICATION
     Dosage: 20 MILLIGRAM, QD (ONCE EVERY MORNING)
     Route: 065
  13. VITAMINS NOS [Concomitant]
     Active Substance: VITAMINS
     Indication: VITAMIN SUPPLEMENTATION
     Dosage: 1 DOSAGE FORM, QD (ONE TAB IN THE MORNING)
     Route: 065
  14. MIDODRINE [Concomitant]
     Active Substance: MIDODRINE
     Indication: PRODUCT USED FOR UNKNOWN INDICATION
     Dosage: 10 MILLIGRAM, TID (5 MG/ 6 TABS A DAY (5 MG/ 6 TABS A DAY (2 AT EACH MEAL))
     Route: 065
  15. CEREFOLIN NAC [ACETYLCYSTEINE;CALCIUM LEVOMEFOLATE;MECOBALAMIN] [Concomitant]
     Indication: PRODUCT USED FOR UNKNOWN INDICATION
     Dosage: UNK, ONE A DAY
     Route: 065
  16. MIRTAZAPINE. [Concomitant]
     Active Substance: MIRTAZAPINE
     Indication: PRODUCT USED FOR UNKNOWN INDICATION
     Dosage: 2.5 MILLIGRAM, QD (ONE A DAY (PM))
     Route: 065
  17. METAMUCIL REGULAR [Concomitant]
     Active Substance: HERBALS\PLANTAGO OVATA LEAF
     Indication: NASAL DISORDER
     Dosage: UNK, QD (ONE SPOON IN THE MORNING)
     Route: 065

REACTIONS (4)
  - Back pain [Not Recovered/Not Resolved]
  - Gait inability [Not Recovered/Not Resolved]
  - Off label use [Unknown]
  - Product use in unapproved indication [Unknown]

NARRATIVE: CASE EVENT DATE: 20200429
